FAERS Safety Report 6791361-7 (Version None)
Quarter: 2010Q2

REPORT INFORMATION
  Report Type: 
  Country: None (occurrence: None)
  Receive Date: 20100618
  Receipt Date: 20100609
  Transmission Date: 20101027
  Serious: Yes (Hospitalization)
  Sender: FDA-Public Use
  Company Number: 2010SP032838

PATIENT
  Age: 75 Year
  Sex: Female

DRUGS (6)
  1. SAPHRIS [Suspect]
     Indication: PARANOIA
     Dosage: 5 MG; QD; SL, 10 MG; QD; SL
     Route: 060
     Dates: end: 20100601
  2. SAPHRIS [Suspect]
     Indication: PSYCHOTIC DISORDER
     Dosage: 5 MG; QD; SL, 10 MG; QD; SL
     Route: 060
     Dates: end: 20100601
  3. SAPHRIS [Suspect]
     Indication: PARANOIA
     Dosage: 5 MG; QD; SL, 10 MG; QD; SL
     Route: 060
  4. SAPHRIS [Suspect]
     Indication: PSYCHOTIC DISORDER
     Dosage: 5 MG; QD; SL, 10 MG; QD; SL
     Route: 060
  5. PROZAC [Concomitant]
  6. NORTRIPTYLINE [Concomitant]

REACTIONS (1)
  - ATAXIA [None]
